FAERS Safety Report 23671367 (Version 1)
Quarter: 2024Q1

REPORT INFORMATION
  Report Type: Spontaneous
  Country: US (occurrence: None)
  Receive Date: 20240326
  Receipt Date: 20240326
  Transmission Date: 20240410
  Serious: No
  Sender: FDA-Public Use
  Company Number: 2024A059811

PATIENT

DRUGS (1)
  1. SYMBICORT [Suspect]
     Active Substance: BUDESONIDE\FORMOTEROL FUMARATE DIHYDRATE
     Dosage: TWO TIMES A DAY
     Route: 055

REACTIONS (7)
  - Candida infection [Unknown]
  - Glossodynia [Unknown]
  - Foreign body ingestion [Unknown]
  - Anxiety [Unknown]
  - Heart rate increased [Unknown]
  - Device physical property issue [Unknown]
  - Wrong technique in product usage process [Unknown]
